FAERS Safety Report 9524894 (Version 2)
Quarter: 2013Q3

REPORT INFORMATION
  Report Type: Report from Study
  Country: FR (occurrence: FR)
  Receive Date: 20130916
  Receipt Date: 20130925
  Transmission Date: 20140515
  Serious: Yes (Death)
  Sender: FDA-Public Use
  Company Number: FR-ASTELLAS-2013EU007840

PATIENT
  Sex: Male

DRUGS (6)
  1. ENZALUTAMIDE [Suspect]
     Indication: PROSTATE CANCER
     Dosage: 160 MG, UNKNOWN/D
     Route: 048
     Dates: start: 20130529
  2. TRIATEC                            /00885601/ [Concomitant]
     Indication: HYPERTENSION
     Dosage: 2.5 UNK, UNKNOWN/D
     Route: 065
     Dates: start: 2010
  3. PREVISCAN                          /00789001/ [Concomitant]
     Indication: PULMONARY EMBOLISM
     Dosage: UNK
     Route: 065
     Dates: start: 201008
  4. OXYCONTIN [Concomitant]
     Indication: PAIN
     Dosage: 30 UNK, BID
     Route: 065
     Dates: start: 201202
  5. ZOMETA [Concomitant]
     Indication: PAIN
     Dosage: 4 MG, UNKNOWN/D
     Route: 065
     Dates: start: 201202
  6. ENANTONE                           /00726901/ [Concomitant]
     Indication: PROSTATE CANCER
     Dosage: 11.25 UNK, UNKNOWN/D
     Route: 065
     Dates: start: 200809

REACTIONS (1)
  - Malignant neoplasm progression [Fatal]
